FAERS Safety Report 14374306 (Version 1)
Quarter: 2018Q1

REPORT INFORMATION
  Report Type: Spontaneous
  Country: CN (occurrence: CN)
  Receive Date: 20180111
  Receipt Date: 20180111
  Transmission Date: 20180509
  Serious: Yes (Other)
  Sender: FDA-Public Use
  Company Number: CN-MERCK KGAA-2039896

PATIENT

DRUGS (2)
  1. PROPYLTHIOURACIL. [Concomitant]
     Active Substance: PROPYLTHIOURACIL
     Route: 048
  2. NOVOTHYROX [Suspect]
     Active Substance: LEVOTHYROXINE SODIUM
     Indication: HYPERTHYROIDISM
     Route: 048

REACTIONS (9)
  - Eye irritation [None]
  - Vision blurred [None]
  - Ocular hyperaemia [None]
  - Eye movement disorder [None]
  - Diplopia [None]
  - Fall [None]
  - Visual impairment [None]
  - Photophobia [None]
  - Exophthalmos [Not Recovered/Not Resolved]
